FAERS Safety Report 18673763 (Version 1)
Quarter: 2020Q4

REPORT INFORMATION
  Report Type: Spontaneous
  Country: ID (occurrence: ID)
  Receive Date: 20201228
  Receipt Date: 20201228
  Transmission Date: 20210114
  Serious: Yes (Other)
  Sender: FDA-Public Use
  Company Number: ID-ANIPHARMA-2020-ID-000010

PATIENT
  Age: 72 Year
  Sex: Male

DRUGS (2)
  1. BICALUTAMIDE. [Suspect]
     Active Substance: BICALUTAMIDE
     Indication: PRODUCT USED FOR UNKNOWN INDICATION
     Dosage: 50 MG UNK
     Route: 048
  2. GOSERELIN ACETATE [Suspect]
     Active Substance: GOSERELIN ACETATE
     Dosage: UNKNOWN DOSE EVERY THREE MONTHS
     Route: 058

REACTIONS (4)
  - Urinary retention [Recovering/Resolving]
  - Cystitis radiation [Recovering/Resolving]
  - Malignant neoplasm progression [Recovering/Resolving]
  - Haematuria [Unknown]

NARRATIVE: CASE EVENT DATE: 202002
